FAERS Safety Report 4566742-2 (Version None)
Quarter: 2005Q1

REPORT INFORMATION
  Report Type: 
  Country: None (occurrence: None)
  Receive Date: 20050201
  Receipt Date: 20011002
  Transmission Date: 20050727
  Serious: Yes (Other)
  Sender: FDA-Public Use
  Company Number: US-BRISTOL-MYERS SQUIBB COMPANY-11043429

PATIENT
  Sex: Male

DRUGS (33)
  1. STADOL [Suspect]
     Route: 045
  2. RETROVIR [Concomitant]
  3. HIVID [Concomitant]
  4. MOTOFEN [Concomitant]
  5. NAPROXEN [Concomitant]
  6. TRIMETHOPRIM + SULFAMETHOXAZOLE [Concomitant]
     Dosage: 800-160
  7. DILANTIN [Concomitant]
  8. DILANTIN [Concomitant]
  9. FLUOXYMESTERONE [Concomitant]
  10. ZOVIRAX [Concomitant]
  11. ZOLOFT [Concomitant]
  12. PHENOBARB [Concomitant]
  13. VITAMIN B-12 [Concomitant]
  14. PROTHAZINE [Concomitant]
  15. LORAZEPAM [Concomitant]
  16. PROVENTIL [Concomitant]
  17. CUTIVATE [Concomitant]
  18. MARINOL [Concomitant]
  19. TRAZODONE HCL [Concomitant]
  20. MEGACE [Concomitant]
  21. EPIVIR [Concomitant]
  22. ZERIT [Concomitant]
  23. ZOVIRAX [Concomitant]
  24. SULFATRIM-DS [Concomitant]
  25. CRIXIVAN [Concomitant]
  26. EPIVIR [Concomitant]
  27. TRIAMCINOLONE [Concomitant]
  28. BUSPAR [Concomitant]
  29. PANCREASE [Concomitant]
  30. PAXIL CR [Concomitant]
  31. ALBUTEROL [Concomitant]
  32. LODINE XL [Concomitant]
  33. PERIACTIN [Concomitant]

REACTIONS (2)
  - DEPENDENCE [None]
  - DRUG WITHDRAWAL SYNDROME [None]
